FAERS Safety Report 24795354 (Version 1)
Quarter: 2024Q4

REPORT INFORMATION
  Report Type: Spontaneous
  Country: FR (occurrence: FR)
  Receive Date: 20241231
  Receipt Date: 20241231
  Transmission Date: 20250114
  Serious: Yes (Hospitalization)
  Sender: MYLAN
  Company Number: None

PATIENT
  Age: 66 Year
  Sex: Male
  Weight: 108 kg

DRUGS (15)
  1. NOREPINEPHRINE [Suspect]
     Active Substance: NOREPINEPHRINE\NOREPINEPHRINE BITARTRATE
     Indication: Product used for unknown indication
     Dosage: 505.52 MILLIGRAM, TOTAL
     Route: 042
     Dates: start: 20240927, end: 20241017
  2. CALCIPARINE [Concomitant]
     Active Substance: HEPARIN CALCIUM
     Dosage: 0.6 MILLILITER, QD
     Route: 058
     Dates: start: 20241014, end: 20241019
  3. LOVENOX [Concomitant]
     Active Substance: ENOXAPARIN SODIUM
     Dosage: 1 DOSAGE FORM, QD, LOVENOX 4,000 IU ANTI-XA/0.4 ML
     Route: 058
     Dates: start: 20241011, end: 20241031
  4. MEROPENEM [Concomitant]
     Active Substance: MEROPENEM
     Dosage: 6 GRAM, QD
     Route: 042
     Dates: start: 20241010, end: 20241016
  5. CLAFORAN [Concomitant]
     Active Substance: CEFOTAXIME SODIUM
     Dosage: 3 GRAM, QD
     Route: 042
     Dates: start: 20241016, end: 20241018
  6. ACETAMINOPHEN [Concomitant]
     Active Substance: ACETAMINOPHEN
     Dosage: 3 GRAM, QD
     Route: 042
     Dates: start: 20241016, end: 20241101
  7. PANTOPRAZOLE [Concomitant]
     Active Substance: PANTOPRAZOLE
     Dosage: 80 MILLIGRAM, QD
     Route: 042
     Dates: start: 20240927, end: 20241031
  8. ULTIVA [Concomitant]
     Active Substance: REMIFENTANIL HYDROCHLORIDE
     Dosage: 3.5 MILLIGRAM, QD
     Route: 042
     Dates: start: 20241012, end: 20241101
  9. INSULIN NOS [Concomitant]
     Active Substance: INSULIN NOS
     Dosage: VARIABLE
     Route: 058
     Dates: start: 20240927, end: 20241023
  10. HYDROCORTISONE [Concomitant]
     Active Substance: HYDROCORTISONE
     Dosage: VARIABLE
     Route: 042
     Dates: start: 20241012, end: 20241014
  11. FUROSEMIDE [Concomitant]
     Active Substance: FUROSEMIDE
     Dosage: 1 DOSAGE FORM, QD, SCORED TABLET
     Route: 042
     Dates: start: 20241016, end: 20241021
  12. MYCAMINE [Concomitant]
     Active Substance: MICAFUNGIN SODIUM
     Dosage: 1 DOSAGE FORM, QD
     Route: 042
     Dates: start: 20241012, end: 20241015
  13. SUFENTANIL [Concomitant]
     Active Substance: SUFENTANIL
     Dosage: 110 MICROGRAM, QD
     Route: 042
     Dates: start: 20241011, end: 20241011
  14. OXYCODONE HYDROCHLORIDE [Concomitant]
     Active Substance: OXYCODONE HYDROCHLORIDE
     Dosage: VARIABLE
     Route: 042
     Dates: start: 20241016, end: 20241023
  15. METRONIDAZOLE [Concomitant]
     Active Substance: METRONIDAZOLE
     Dosage: 1500 MILLIGRAM, QD
     Route: 042
     Dates: start: 20241017, end: 20241018

REACTIONS (2)
  - Extremity necrosis [Not Recovered/Not Resolved]
  - Gastrointestinal necrosis [Not Recovered/Not Resolved]

NARRATIVE: CASE EVENT DATE: 20241001
